FAERS Safety Report 18451678 (Version 1)
Quarter: 2020Q4

REPORT INFORMATION
  Report Type: Spontaneous
  Country: BE (occurrence: BE)
  Receive Date: 20201102
  Receipt Date: 20201102
  Transmission Date: 20210114
  Serious: Yes (Hospitalization, Other)
  Sender: FDA-Public Use
  Company Number: BE-GLAXOSMITHKLINE-BE2020213468

PATIENT
  Sex: Male

DRUGS (1)
  1. ZINNAT [Suspect]
     Active Substance: CEFUROXIME
     Indication: EAR INFECTION
     Dosage: 1 DF, SINGLE
     Route: 065

REACTIONS (5)
  - Swelling [Unknown]
  - Hypersensitivity [Unknown]
  - Ear swelling [Unknown]
  - Dyspnoea [Unknown]
  - Rash [Unknown]
